FAERS Safety Report 7667373-8 (Version None)
Quarter: 2011Q3

REPORT INFORMATION
  Report Type: 
  Country: None (occurrence: None)
  Receive Date: 20110806
  Receipt Date: 20110301
  Transmission Date: 20111222
  Serious: No
  Sender: FDA-Public Use
  Company Number: US-ABBOTT-11P-163-0708717-00

PATIENT

DRUGS (2)
  1. NIASPAN [Suspect]
     Indication: PRODUCT USED FOR UNKNOWN INDICATION
     Dosage: NORMAL TITRATION SCHEDULE
  2. NIASPAN [Suspect]

REACTIONS (2)
  - FLUSHING [None]
  - PAIN IN EXTREMITY [None]
